FAERS Safety Report 24864234 (Version 1)
Quarter: 2025Q1

REPORT INFORMATION
  Report Type: Spontaneous
  Country: CN (occurrence: CN)
  Receive Date: 20250120
  Receipt Date: 20250120
  Transmission Date: 20250409
  Serious: Yes (Other)
  Sender: NOVARTIS
  Company Number: CN-002147023-NVSC2025CN008494

PATIENT
  Age: 53 Year
  Sex: Female
  Weight: 45 kg

DRUGS (1)
  1. TEGRETOL [Suspect]
     Active Substance: CARBAMAZEPINE
     Indication: Facial spasm
     Dosage: 5 DOSAGE FORM, QD (TABLET)
     Route: 048
     Dates: start: 20250104, end: 20250104

REACTIONS (5)
  - Overdose [Recovering/Resolving]
  - Dizziness [Recovering/Resolving]
  - Vomiting [Recovered/Resolved]
  - Toxicity to various agents [Unknown]
  - Blood pressure increased [Unknown]

NARRATIVE: CASE EVENT DATE: 20250105
